FAERS Safety Report 5758081-9 (Version None)
Quarter: 2008Q2

REPORT INFORMATION
  Report Type: 
  Country: None (occurrence: None)
  Receive Date: 20080602
  Receipt Date: 20080602
  Transmission Date: 20081010
  Serious: Yes (Life-Threatening, Hospitalization, Other)
  Sender: FDA-Public Use
  Company Number: None

PATIENT
  Age: 70 Year
  Sex: Female
  Weight: 129.2752 kg

DRUGS (1)
  1. DIGITEK 0.25 MG MYLAN [Suspect]
     Indication: HYPERTENSION
     Dosage: 0.25MG DAILY PO
     Route: 048

REACTIONS (9)
  - ABASIA [None]
  - BLOOD PRESSURE ABNORMAL [None]
  - CARDIOVASCULAR DISORDER [None]
  - DIZZINESS [None]
  - MALAISE [None]
  - NAUSEA [None]
  - PAIN [None]
  - PHARMACEUTICAL PRODUCT COMPLAINT [None]
  - VOMITING [None]
